FAERS Safety Report 12830619 (Version 1)
Quarter: 2016Q4

REPORT INFORMATION
  Report Type: Spontaneous
  Country: IN (occurrence: IN)
  Receive Date: 20161007
  Receipt Date: 20161007
  Transmission Date: 20170207
  Serious: Yes (Other)
  Sender: FDA-Public Use
  Company Number: PHHY2016IN137235

PATIENT
  Age: 67 Year
  Sex: Male
  Weight: 60 kg

DRUGS (5)
  1. FEXOFENADINE [Concomitant]
     Active Substance: FEXOFENADINE\FEXOFENADINE HYDROCHLORIDE
     Indication: ASTHMA
     Dosage: 1 DF, QHS (0-0-1)
     Route: 048
     Dates: start: 201607
  2. SEQUADRA INHALER [Suspect]
     Active Substance: GLYCOPYRRONIUM\INDACATEROL
     Indication: ASTHMA
     Dosage: 1 DF, QD
     Route: 055
     Dates: start: 201607, end: 20160922
  3. BUDESONIDE. [Concomitant]
     Active Substance: BUDESONIDE
     Indication: ASTHMA
     Dosage: 1 DF, BID (1-0-1)
     Route: 055
     Dates: start: 201607
  4. MONTELUKAST [Concomitant]
     Active Substance: MONTELUKAST SODIUM
     Indication: ASTHMA
     Dosage: 1 DF, QHS (0-0-1)
     Route: 048
     Dates: start: 201607
  5. AMLODIPINE [Concomitant]
     Active Substance: AMLODIPINE BESYLATE
     Indication: HYPERTENSION
     Dosage: 1 DF, QD (1-0-0)
     Route: 048
     Dates: start: 201607

REACTIONS (5)
  - Swelling face [Recovering/Resolving]
  - Ear infection [Recovered/Resolved]
  - Otorrhoea [Recovering/Resolving]
  - Product use issue [Unknown]
  - Tinnitus [Recovering/Resolving]

NARRATIVE: CASE EVENT DATE: 201607
